FAERS Safety Report 4897412-9 (Version None)
Quarter: 2006Q1

REPORT INFORMATION
  Report Type: 
  Country: None (occurrence: None)
  Receive Date: 20060130
  Receipt Date: 20060130
  Transmission Date: 20060701
  Serious: Yes (Disabling)
  Sender: FDA-Public Use
  Company Number: None

PATIENT
  Sex: Female
  Weight: 70.3075 kg

DRUGS (1)
  1. AMIODARONE [Suspect]
     Indication: ATRIAL FIBRILLATION
     Dates: start: 20030615, end: 20040715

REACTIONS (9)
  - ACTIVITIES OF DAILY LIVING IMPAIRED [None]
  - CARDIAC DISORDER [None]
  - CRYING [None]
  - DISEASE PROGRESSION [None]
  - DYSPNOEA [None]
  - FATIGUE [None]
  - IDIOPATHIC PULMONARY FIBROSIS [None]
  - MITRAL VALVE REPAIR [None]
  - POST PROCEDURAL COMPLICATION [None]
